FAERS Safety Report 19295206 (Version 1)
Quarter: 2021Q2

REPORT INFORMATION
  Report Type: Spontaneous
  Country: US (occurrence: US)
  Receive Date: 20210524
  Receipt Date: 20210524
  Transmission Date: 20210717
  Serious: Yes (Other)
  Sender: FDA-Public Use
  Company Number: US-MYLANLABS-2021M1030303

PATIENT
  Age: 41 Year
  Sex: Male

DRUGS (1)
  1. TOBRAMYCIN. [Suspect]
     Active Substance: TOBRAMYCIN
     Indication: CORNEAL ABRASION
     Dosage: UNK UNK, QID
     Route: 061

REACTIONS (3)
  - Condition aggravated [Recovered/Resolved]
  - Off label use [Unknown]
  - Corneal abrasion [Recovered/Resolved]
